FAERS Safety Report 13899335 (Version 1)
Quarter: 2017Q3

REPORT INFORMATION
  Report Type: Spontaneous
  Country: US (occurrence: US)
  Receive Date: 20170823
  Receipt Date: 20170823
  Transmission Date: 20171127
  Serious: No
  Sender: FDA-Public Use
  Company Number: US-JAZZ-2017-US-008112

PATIENT
  Sex: Female

DRUGS (49)
  1. SPRINTEC [Concomitant]
     Active Substance: ETHINYL ESTRADIOL\NORGESTIMATE
  2. VITAMIN B12 [Concomitant]
     Active Substance: CYANOCOBALAMIN
  3. TRIAMCINOLONE [Concomitant]
     Active Substance: TRIAMCINOLONE
  4. FLONASE                            /00908302/ [Concomitant]
     Active Substance: MOMETASONE FUROATE
  5. LIDODERM [Concomitant]
     Active Substance: LIDOCAINE
  6. WELLBUTRIN [Concomitant]
     Active Substance: BUPROPION HYDROCHLORIDE
  7. ZEGERID                            /00661201/ [Concomitant]
     Active Substance: OMEPRAZOLE
  8. NEXIUM [Concomitant]
     Active Substance: ESOMEPRAZOLE MAGNESIUM
  9. XYREM [Suspect]
     Active Substance: SODIUM OXYBATE
     Dosage: 2.5 G, QD; SECOND DOSE
     Route: 048
     Dates: start: 201409
  10. CALCIUM ANTACID [Concomitant]
     Active Substance: CALCIUM CARBONATE
  11. RESTASIS [Concomitant]
     Active Substance: CYCLOSPORINE
  12. MIRAPEX [Concomitant]
     Active Substance: PRAMIPEXOLE DIHYDROCHLORIDE
  13. OXYCONTIN [Concomitant]
     Active Substance: OXYCODONE HYDROCHLORIDE
  14. OXYTROL FOR WOMEN [Concomitant]
     Active Substance: OXYBUTYNIN
  15. AMBIEN [Concomitant]
     Active Substance: ZOLPIDEM TARTRATE
  16. LORAZEPAM. [Concomitant]
     Active Substance: LORAZEPAM
  17. NEURONTIN [Concomitant]
     Active Substance: GABAPENTIN
  18. PERCOCET                           /00446701/ [Concomitant]
     Active Substance: ACETAMINOPHEN\OXYCODONE HYDROCHLORIDE\OXYCODONE TEREPHTHALATE
  19. ZANAFLEX [Concomitant]
     Active Substance: TIZANIDINE HYDROCHLORIDE
  20. PROVENTIL [Concomitant]
     Active Substance: ALBUTEROL
  21. XYREM [Suspect]
     Active Substance: SODIUM OXYBATE
     Indication: NARCOLEPSY
     Dosage: 1.5 G, BID
     Route: 048
     Dates: start: 201005, end: 2011
  22. XYREM [Suspect]
     Active Substance: SODIUM OXYBATE
     Dosage: DOSE ADJUSTMENT
     Route: 048
     Dates: start: 201106, end: 201409
  23. XYREM [Suspect]
     Active Substance: SODIUM OXYBATE
     Dosage: 4 G, QD; FIRST DOSE
     Route: 048
     Dates: start: 201409
  24. ERYTHROMYCIN. [Concomitant]
     Active Substance: ERYTHROMYCIN
  25. ADDERALL [Concomitant]
     Active Substance: AMPHETAMINE ASPARTATE\AMPHETAMINE SULFATE\DEXTROAMPHETAMINE SACCHARATE\DEXTROAMPHETAMINE SULFATE
  26. COLACE [Concomitant]
     Active Substance: DOCUSATE SODIUM
  27. BACLOFEN. [Concomitant]
     Active Substance: BACLOFEN
  28. SALAGEN [Concomitant]
     Active Substance: PILOCARPINE HYDROCHLORIDE
  29. SINGULAIR [Concomitant]
     Active Substance: MONTELUKAST SODIUM
  30. SONATA                             /00061001/ [Concomitant]
  31. CELEXA [Concomitant]
     Active Substance: CITALOPRAM HYDROBROMIDE
  32. GREEN TEA                          /01578101/ [Concomitant]
     Active Substance: GREEN TEA LEAF
  33. LINZESS [Concomitant]
     Active Substance: LINACLOTIDE
  34. AMITIZA [Concomitant]
     Active Substance: LUBIPROSTONE
  35. REQUIP [Concomitant]
     Active Substance: ROPINIROLE HYDROCHLORIDE
  36. VIIBRYD [Concomitant]
     Active Substance: VILAZODONE HYDROCHLORIDE
  37. DOXYCYCLINE HYDROCHLORIDE [Concomitant]
     Active Substance: DOXYCYCLINE HYDROCHLORIDE
  38. VITAMIN D3 [Concomitant]
     Active Substance: CHOLECALCIFEROL
  39. AMMONIUM LACTATE. [Concomitant]
     Active Substance: AMMONIUM LACTATE
  40. MIDRIN                             /00450801/ [Concomitant]
     Active Substance: ACETAMINOPHEN\DICHLORALPHENAZONE\ISOMETHEPTENE HYDROCHLORIDE
  41. VOLTAREN [Concomitant]
     Active Substance: DICLOFENAC SODIUM
  42. DIAZEPAM. [Concomitant]
     Active Substance: DIAZEPAM
  43. PILOCARPINE HCL [Concomitant]
     Active Substance: PILOCARPINE HYDROCHLORIDE
  44. VITAMIN D                          /00107901/ [Concomitant]
     Active Substance: ERGOCALCIFEROL
  45. ALBUTEROL SULFATE. [Concomitant]
     Active Substance: ALBUTEROL SULFATE
  46. KEPPRA [Concomitant]
     Active Substance: LEVETIRACETAM
  47. MIDODRINE HCL [Concomitant]
     Active Substance: MIDODRINE HYDROCHLORIDE
  48. OMEPRAZOLE. [Concomitant]
     Active Substance: OMEPRAZOLE
  49. PREDNISOLONE. [Concomitant]
     Active Substance: PREDNISOLONE

REACTIONS (1)
  - Malaise [Not Recovered/Not Resolved]
